FAERS Safety Report 20983029 (Version 1)
Quarter: 2022Q2

REPORT INFORMATION
  Report Type: Spontaneous
  Country: US (occurrence: None)
  Receive Date: 20220620
  Receipt Date: 20220620
  Transmission Date: 20220720
  Serious: Yes (Life-Threatening, Hospitalization)
  Sender: FDA-Public Use
  Company Number: 2022A226821

PATIENT
  Sex: Female

DRUGS (2)
  1. SEROQUEL XR [Suspect]
     Active Substance: QUETIAPINE FUMARATE
     Route: 048
  2. SEROQUEL XR [Suspect]
     Active Substance: QUETIAPINE FUMARATE
     Dosage: GENERIC
     Route: 048

REACTIONS (6)
  - COVID-19 [Unknown]
  - Diplopia [Unknown]
  - Visual impairment [Unknown]
  - Hallucination [Unknown]
  - Wrong technique in product usage process [Unknown]
  - Insurance issue [Unknown]
